FAERS Safety Report 8308404-1 (Version None)
Quarter: 2012Q2

REPORT INFORMATION
  Report Type: 
  Country: None (occurrence: None)
  Receive Date: 20120424
  Receipt Date: 20120419
  Transmission Date: 20120825
  Serious: Yes (Hospitalization)
  Sender: FDA-Public Use
  Company Number: US-MERCK-1203USA02332

PATIENT
  Age: 70 Year
  Sex: Female

DRUGS (2)
  1. BONIVA [Suspect]
     Route: 065
     Dates: start: 20090101, end: 20110101
  2. FOSAMAX [Suspect]
     Route: 048
     Dates: start: 20050101, end: 20090101

REACTIONS (6)
  - LOW TURNOVER OSTEOPATHY [None]
  - HYPERTENSION [None]
  - BLOOD CHOLESTEROL INCREASED [None]
  - AORTIC ARTERIOSCLEROSIS [None]
  - FEMUR FRACTURE [None]
  - CARDIOMEGALY [None]
